FAERS Safety Report 16923322 (Version 1)
Quarter: 2019Q4

REPORT INFORMATION
  Report Type: Spontaneous
  Country: SA (occurrence: SA)
  Receive Date: 20191016
  Receipt Date: 20191016
  Transmission Date: 20200122
  Serious: Yes (Hospitalization, Other)
  Sender: FDA-Public Use
  Company Number: SA-SUN PHARMACEUTICAL INDUSTRIES LTD-2019RR-223620

PATIENT
  Age: 41 Year
  Sex: Male

DRUGS (8)
  1. MIDAZOLAM [Suspect]
     Active Substance: MIDAZOLAM HYDROCHLORIDE
     Indication: SEIZURE
     Dosage: CONTINUOUS INFUSION OVER 5 DAYS
     Route: 042
  2. THIOPENTAL [Suspect]
     Active Substance: THIOPENTAL
     Indication: SEIZURE
     Dosage: UNK
     Route: 042
  3. VALPORIC ACID [Suspect]
     Active Substance: VALPROIC ACID
     Indication: SEIZURE
     Dosage: UNK
     Route: 042
  4. FENTANYL. [Suspect]
     Active Substance: FENTANYL
     Indication: SEIZURE
     Dosage: UNK
     Route: 042
  5. KETAMINE [Suspect]
     Active Substance: KETAMINE
     Indication: SEIZURE
     Dosage: UNK
     Route: 042
  6. LEVETIRACETAM. [Suspect]
     Active Substance: LEVETIRACETAM
     Indication: SEIZURE
     Dosage: UNK
     Route: 042
  7. BENZODIAZEPINE [Suspect]
     Active Substance: BENZODIAZEPINE
     Indication: SEIZURE
     Dosage: UNK
     Route: 042
  8. PHENOBARBITONE [Suspect]
     Active Substance: PHENOBARBITAL
     Indication: SEIZURE
     Dosage: UNK
     Route: 042

REACTIONS (3)
  - Therapeutic product effect incomplete [Unknown]
  - Drug ineffective [Unknown]
  - Neurological decompensation [Recovered/Resolved]
